FAERS Safety Report 12101716 (Version 4)
Quarter: 2016Q2

REPORT INFORMATION
  Report Type: Spontaneous
  Country: FR (occurrence: FR)
  Receive Date: 20160222
  Receipt Date: 20160425
  Transmission Date: 20160815
  Serious: Yes (Hospitalization, Other)
  Sender: FDA-Public Use
  Company Number: FR-GILEAD-2016-0198478

PATIENT
  Age: 43 Year
  Sex: Male
  Weight: 82 kg

DRUGS (7)
  1. HEROIN [Concomitant]
     Active Substance: DIACETYLMORPHINE
     Dosage: UNK
     Dates: start: 20160122
  2. HARVONI [Suspect]
     Active Substance: LEDIPASVIR\SOFOSBUVIR
     Indication: CHRONIC HEPATITIS C
     Dosage: 1 UNK, QD
     Route: 048
     Dates: start: 20160114, end: 20160129
  3. HAVLANE [Concomitant]
     Active Substance: LOPRAZOLAM
     Dosage: UNK
     Dates: start: 201503
  4. NUROFEN                            /00109201/ [Suspect]
     Active Substance: IBUPROFEN
     Indication: TOOTHACHE
     Dosage: 400 MG, QD
     Route: 048
     Dates: start: 20160122, end: 20160129
  5. PARACETAMOL [Concomitant]
     Active Substance: ACETAMINOPHEN
     Dosage: UNK
     Dates: start: 201503
  6. STRIBILD [Suspect]
     Active Substance: COBICISTAT\ELVITEGRAVIR\EMTRICITABINE\TENOFOVIR DISOPROXIL FUMARATE
     Indication: HIV INFECTION
     Dosage: 1 UNK,
     Route: 048
     Dates: start: 20150316, end: 20160129
  7. TOPALGIC                           /00599202/ [Concomitant]
     Active Substance: TRAMADOL
     Indication: TOOTHACHE
     Dosage: UNK
     Dates: start: 20160122, end: 20160129

REACTIONS (4)
  - Toothache [Unknown]
  - Seizure [Recovered/Resolved]
  - Acute kidney injury [Recovered/Resolved]
  - Rhabdomyolysis [Unknown]

NARRATIVE: CASE EVENT DATE: 20160122
